FAERS Safety Report 8581930-6 (Version None)
Quarter: 2012Q3

REPORT INFORMATION
  Report Type: 
  Country: None (occurrence: None)
  Receive Date: 20120801
  Receipt Date: 20120801
  Transmission Date: 20120928
  Serious: Yes (Other)
  Sender: FDA-Public Use
  Company Number: None

PATIENT
  Age: 46 Year
  Sex: Female
  Weight: 57.1532 kg

DRUGS (2)
  1. COPAXONE [Suspect]
     Indication: MULTIPLE SCLEROSIS
     Dosage: 20 MG QD S-Q
     Route: 058
     Dates: start: 20120730
  2. COPAXONE [Suspect]
     Indication: MULTIPLE SCLEROSIS
     Dosage: 20 MG QD S-Q
     Route: 058
     Dates: start: 20120717

REACTIONS (3)
  - ASTHENIA [None]
  - MOVEMENT DISORDER [None]
  - MEMORY IMPAIRMENT [None]
